FAERS Safety Report 6369231-8 (Version None)
Quarter: 2009Q3

REPORT INFORMATION
  Report Type: 
  Country: None (occurrence: None)
  Receive Date: 20090916
  Receipt Date: 20090908
  Transmission Date: 20100115
  Serious: Yes (Life-Threatening, Other)
  Sender: FDA-Public Use
  Company Number: ADR19632009

PATIENT
  Age: 55 Year
  Sex: Female

DRUGS (9)
  1. SERTRALINE HCL [Suspect]
     Dosage: 100 MG ORAL
     Route: 048
     Dates: start: 20070101, end: 20071127
  2. ALISKIREN [Concomitant]
  3. DICLOFENAC [Concomitant]
  4. ATENOLOL [Concomitant]
  5. CO-CODAMOL [Concomitant]
  6. LISINOPRIL [Concomitant]
  7. OMEPRAZOLE [Concomitant]
  8. ZOLPIDEM [Concomitant]
  9. ZOPICLONE [Concomitant]

REACTIONS (1)
  - ANAEMIA [None]
